FAERS Safety Report 11214765 (Version 1)
Quarter: 2015Q2

REPORT INFORMATION
  Report Type: Spontaneous
  Country: US (occurrence: None)
  Receive Date: 20150622
  Receipt Date: 20150622
  Transmission Date: 20150821
  Serious: No
  Sender: FDA-Public Use
  Company Number: None

PATIENT
  Age: 59 Year
  Sex: Female

DRUGS (2)
  1. RIBASPHERE [Suspect]
     Active Substance: RIBAVIRIN
     Dosage: 3 CAPSULES AM 2 CAPSULES PM BID ORAL
     Route: 048
     Dates: start: 20150514
  2. VICKIRA [Concomitant]

REACTIONS (9)
  - Balance disorder [None]
  - Nausea [None]
  - Depression [None]
  - Nasal ulcer [None]
  - Wheezing [None]
  - Pain [None]
  - Diarrhoea [None]
  - Insomnia [None]
  - Dizziness [None]

NARRATIVE: CASE EVENT DATE: 20150609
